FAERS Safety Report 4576992-7 (Version None)
Quarter: 2005Q1

REPORT INFORMATION
  Report Type: 
  Country: None (occurrence: None)
  Receive Date: 20050208
  Receipt Date: 20050127
  Transmission Date: 20050727
  Serious: Yes (Hospitalization)
  Sender: FDA-Public Use
  Company Number: 2005UW01461

PATIENT
  Age: 75 Year
  Sex: Male
  Weight: 167 kg

DRUGS (8)
  1. IRESSA [Suspect]
     Indication: PANCREATIC CARCINOMA
     Dosage: 250 MG QD PO
     Route: 048
     Dates: start: 20031024
  2. TAXOL [Suspect]
     Indication: PANCREATIC CARCINOMA
     Dosage: 71 MG WEEK
     Dates: start: 20031024, end: 20031212
  3. RADIATION [Suspect]
     Indication: PANCREATIC CARCINOMA
     Dosage: 5040 GY TOTAL
     Dates: start: 20031024, end: 20031212
  4. COZAAR [Concomitant]
  5. COUMADIN [Concomitant]
  6. TAMBOCOR [Concomitant]
  7. NEXIUM [Concomitant]
  8. AMBIEN [Concomitant]

REACTIONS (3)
  - ANAEMIA [None]
  - COLITIS [None]
  - GASTROINTESTINAL HAEMORRHAGE [None]
